FAERS Safety Report 8091997-X (Version None)
Quarter: 2012Q1

REPORT INFORMATION
  Report Type: 
  Country: None (occurrence: None)
  Receive Date: 20120131
  Receipt Date: 20120130
  Transmission Date: 20120608
  Serious: Yes (Life-Threatening, Hospitalization)
  Sender: FDA-Public Use
  Company Number: JP-JNJFOC-20110902699

PATIENT
  Sex: Female

DRUGS (5)
  1. PHYSIO [Concomitant]
     Indication: ENTEROCOLITIS
     Route: 041
     Dates: start: 20110821, end: 20110824
  2. LACTEC [Concomitant]
     Indication: ENTEROCOLITIS
     Route: 041
     Dates: start: 20110821, end: 20110821
  3. LACTEC [Concomitant]
     Route: 041
     Dates: start: 20110822, end: 20110831
  4. LEVOFLOXACIN [Suspect]
     Indication: ENTEROCOLITIS
     Route: 048
     Dates: start: 20110824, end: 20110827
  5. CEFOTIAM HYDROCHLORIDE [Concomitant]
     Indication: ENTEROCOLITIS
     Route: 041
     Dates: start: 20110821, end: 20110824

REACTIONS (1)
  - HAEMOLYTIC URAEMIC SYNDROME [None]
